FAERS Safety Report 7844481-X (Version None)
Quarter: 2011Q4

REPORT INFORMATION
  Report Type: 
  Country: None (occurrence: None)
  Receive Date: 20111025
  Receipt Date: 20111012
  Transmission Date: 20120403
  Serious: Yes (Hospitalization)
  Sender: FDA-Public Use
  Company Number: US-BAYER-2011-055269

PATIENT
  Age: 31 Year
  Sex: Female
  Weight: 79.365 kg

DRUGS (10)
  1. CREON [Concomitant]
  2. CAMPRAL [Concomitant]
     Dosage: 666 MG, TID
     Route: 048
  3. SELLA [Concomitant]
     Dosage: UNK UNK, QD
     Route: 048
  4. YASMIN [Suspect]
     Dosage: UNK
     Dates: start: 20080101, end: 20090101
  5. ZYRTEC-D 12 HOUR [Concomitant]
     Dosage: UNK UNK, PRN
     Route: 048
  6. DROSPIRENONE AND ETHINYL ESTRADIOL [Suspect]
     Dosage: UNK
     Dates: start: 20080101, end: 20090101
  7. ANTABUSE [Concomitant]
     Dosage: 250 MG, QD
  8. PRILOSEC [Concomitant]
     Dosage: 20 MG, QD
     Route: 048
  9. ALBUTEROL [Concomitant]
     Indication: ASTHMA
     Dosage: UNK
  10. MOTRIN [Concomitant]

REACTIONS (3)
  - PAIN [None]
  - SPLENIC INFARCTION [None]
  - THROMBOSIS [None]
